FAERS Safety Report 9327870 (Version 1)
Quarter: 2013Q2

REPORT INFORMATION
  Report Type: Spontaneous
  Country: ES (occurrence: ES)
  Receive Date: 20130604
  Receipt Date: 20130604
  Transmission Date: 20140414
  Serious: Yes (Other)
  Sender: FDA-Public Use
  Company Number: ES-JNJFOC-20130515602

PATIENT
  Sex: 0

DRUGS (29)
  1. DOXORUBICIN [Suspect]
     Indication: BURKITT^S LEUKAEMIA
     Route: 042
  2. DOXORUBICIN [Suspect]
     Indication: BURKITT^S LYMPHOMA
     Route: 042
  3. CYCLOPHOSPHAMIDE [Suspect]
     Indication: BURKITT^S LEUKAEMIA
     Route: 042
  4. CYCLOPHOSPHAMIDE [Suspect]
     Indication: BURKITT^S LYMPHOMA
     Route: 042
  5. PREDNISONE [Suspect]
     Indication: BURKITT^S LEUKAEMIA
     Route: 040
  6. PREDNISONE [Suspect]
     Indication: BURKITT^S LYMPHOMA
     Route: 040
  7. RITUXIMAB [Suspect]
     Indication: BURKITT^S LEUKAEMIA
     Route: 042
  8. RITUXIMAB [Suspect]
     Indication: BURKITT^S LYMPHOMA
     Route: 042
  9. VINCRISTINE [Suspect]
     Indication: BURKITT^S LEUKAEMIA
     Route: 040
  10. VINCRISTINE [Suspect]
     Indication: BURKITT^S LYMPHOMA
     Route: 040
  11. METHOTREXATE [Suspect]
     Indication: BURKITT^S LEUKAEMIA
     Route: 042
  12. METHOTREXATE [Suspect]
     Indication: BURKITT^S LYMPHOMA
     Route: 042
  13. IPHOSPHAMIDE [Suspect]
     Indication: BURKITT^S LEUKAEMIA
     Route: 042
  14. IPHOSPHAMIDE [Suspect]
     Indication: BURKITT^S LYMPHOMA
     Route: 042
  15. TENIPOSIDE [Suspect]
     Indication: BURKITT^S LEUKAEMIA
     Route: 042
  16. TENIPOSIDE [Suspect]
     Indication: BURKITT^S LYMPHOMA
     Route: 042
  17. CYTARABINE [Suspect]
     Indication: BURKITT^S LEUKAEMIA
     Route: 042
  18. CYTARABINE [Suspect]
     Indication: BURKITT^S LEUKAEMIA
     Route: 042
  19. CYTARABINE [Suspect]
     Indication: BURKITT^S LYMPHOMA
     Route: 042
  20. CYTARABINE [Suspect]
     Indication: BURKITT^S LYMPHOMA
     Route: 042
  21. DEXAMETHASONE [Suspect]
     Indication: BURKITT^S LEUKAEMIA
     Route: 040
  22. DEXAMETHASONE [Suspect]
     Indication: BURKITT^S LYMPHOMA
     Route: 040
  23. VINDESINE [Suspect]
     Indication: BURKITT^S LEUKAEMIA
     Route: 040
  24. VINDESINE [Suspect]
     Indication: BURKITT^S LYMPHOMA
     Route: 040
  25. ETOPOSIDE [Suspect]
     Indication: BURKITT^S LEUKAEMIA
     Route: 042
  26. ETOPOSIDE [Suspect]
     Indication: BURKITT^S LYMPHOMA
     Route: 042
  27. METHOTREXATE [Suspect]
     Indication: NERVOUS SYSTEM DISORDER
     Route: 037
  28. CYTARABINE [Suspect]
     Indication: NERVOUS SYSTEM DISORDER
     Route: 065
  29. DEXAMETHASONE [Suspect]
     Indication: NERVOUS SYSTEM DISORDER
     Route: 065

REACTIONS (1)
  - Nephropathy toxic [Unknown]
